FAERS Safety Report 5336435-2 (Version None)
Quarter: 2007Q2

REPORT INFORMATION
  Report Type: 
  Country: None (occurrence: None)
  Receive Date: 20070523
  Receipt Date: 20070511
  Transmission Date: 20071010
  Serious: Yes (Hospitalization)
  Sender: FDA-Public Use
  Company Number: 310004M07SWE

PATIENT
  Age: 37 Year
  Sex: Female

DRUGS (6)
  1. GONAL-F [Suspect]
     Indication: INFERTILITY
     Dates: start: 20070201
  2. FOLACIN (FOLACIN) [Concomitant]
  3. TRANDATE [Concomitant]
  4. SUPRECUR (BUSERELIN ACETATE) [Concomitant]
  5. HUMALOG [Concomitant]
  6. LANTUS [Concomitant]

REACTIONS (3)
  - AGITATION [None]
  - CONFUSIONAL STATE [None]
  - HYPOGLYCAEMIA [None]
